FAERS Safety Report 17991781 (Version 2)
Quarter: 2020Q3

REPORT INFORMATION
  Report Type: Report from Study
  Country: US (occurrence: US)
  Receive Date: 20200707
  Receipt Date: 20200822
  Transmission Date: 20201103
  Serious: Yes (Hospitalization)
  Sender: FDA-Public Use
  Company Number: US-ACTELION-A-NJ2020-206738

PATIENT
  Sex: Female
  Weight: 71.66 kg

DRUGS (2)
  1. TYVASO [Concomitant]
     Active Substance: TREPROSTINIL
  2. OPSUMIT [Suspect]
     Active Substance: MACITENTAN
     Indication: PULMONARY ARTERIAL HYPERTENSION
     Dosage: 10 MG, QD
     Route: 048

REACTIONS (5)
  - Cough [Recovered/Resolved]
  - Suspected COVID-19 [Recovered/Resolved]
  - Abdominal pain upper [Unknown]
  - Nasopharyngitis [Recovered/Resolved]
  - Chills [Recovered/Resolved]
